FAERS Safety Report 16287665 (Version 1)
Quarter: 2019Q2

REPORT INFORMATION
  Report Type: Spontaneous
  Country: US (occurrence: US)
  Receive Date: 20190508
  Receipt Date: 20190508
  Transmission Date: 20190711
  Serious: Yes (Other)
  Sender: FDA-Public Use
  Company Number: US-ASTRAZENECA-2019SE59206

PATIENT
  Age: 22677 Day
  Sex: Female

DRUGS (25)
  1. KLOR-CON [Concomitant]
     Active Substance: POTASSIUM CHLORIDE
  2. LISINOPRIL. [Concomitant]
     Active Substance: LISINOPRIL
  3. CLONIDINE. [Concomitant]
     Active Substance: CLONIDINE
  4. GLYBURIDE. [Concomitant]
     Active Substance: GLYBURIDE
  5. PROTONIX [Suspect]
     Active Substance: PANTOPRAZOLE SODIUM
     Route: 065
     Dates: start: 2004, end: 2017
  6. METOPROLOL. [Concomitant]
     Active Substance: METOPROLOL
  7. ATORVASTATIN [Concomitant]
     Active Substance: ATORVASTATIN
  8. HYDROCODONE-ACETAMINOPHEN [Concomitant]
     Active Substance: ACETAMINOPHEN\HYDROCODONE
  9. TRAMADOL. [Concomitant]
     Active Substance: TRAMADOL
  10. NEXIUM [Suspect]
     Active Substance: ESOMEPRAZOLE MAGNESIUM
     Route: 065
     Dates: start: 20130110
  11. ALLOPURINOL. [Concomitant]
     Active Substance: ALLOPURINOL
  12. ZETIA [Concomitant]
     Active Substance: EZETIMIBE
  13. LEVOTHYROXINE. [Concomitant]
     Active Substance: LEVOTHYROXINE
  14. FOLIC ACID. [Concomitant]
     Active Substance: FOLIC ACID
  15. IBUPROFEN. [Concomitant]
     Active Substance: IBUPROFEN
  16. HYDRALAZINE [Concomitant]
     Active Substance: HYDRALAZINE HYDROCHLORIDE
  17. NEXIUM [Suspect]
     Active Substance: ESOMEPRAZOLE MAGNESIUM
     Route: 048
     Dates: start: 2004, end: 2017
  18. BENZONATATE. [Concomitant]
     Active Substance: BENZONATATE
  19. METOLAZONE. [Concomitant]
     Active Substance: METOLAZONE
  20. AMLODIPINE BESYLATE. [Concomitant]
     Active Substance: AMLODIPINE BESYLATE
  21. LIDODERM [Concomitant]
     Active Substance: LIDOCAINE
  22. FUROSEMIDE. [Concomitant]
     Active Substance: FUROSEMIDE
  23. LYRICA [Concomitant]
     Active Substance: PREGABALIN
  24. ISOSORBIDE. [Concomitant]
     Active Substance: ISOSORBIDE
  25. ONDANSETRON [Concomitant]
     Active Substance: ONDANSETRON

REACTIONS (6)
  - Renal failure [Unknown]
  - Nephrogenic anaemia [Unknown]
  - Acute kidney injury [Unknown]
  - Hyperparathyroidism secondary [Unknown]
  - End stage renal disease [Unknown]
  - Chronic kidney disease [Unknown]

NARRATIVE: CASE EVENT DATE: 20121119
